FAERS Safety Report 13781654 (Version 1)
Quarter: 2017Q3

REPORT INFORMATION
  Report Type: Spontaneous
  Country: PT (occurrence: PT)
  Receive Date: 20170724
  Receipt Date: 20170724
  Transmission Date: 20171127
  Serious: Yes (Other)
  Sender: FDA-Public Use
  Company Number: PT-PFIZER INC-3006274

PATIENT
  Age: 40 Year
  Sex: Female
  Weight: 67.6 kg

DRUGS (8)
  1. EPIRUBICIN [Concomitant]
     Active Substance: EPIRUBICIN
     Indication: BREAST CANCER
     Dosage: 160 MG, UNK
     Route: 042
     Dates: start: 20151019, end: 20151019
  2. PREDNISOLONE. [Concomitant]
     Active Substance: PREDNISOLONE
     Indication: ALLERGY PROPHYLAXIS
     Dosage: 30 MG, FREQ: 1 DAY; INTERVAL: 1
     Route: 048
     Dates: start: 20150816, end: 20150817
  3. DOCETAXEL. [Suspect]
     Active Substance: DOCETAXEL
     Indication: BREAST CANCER
     Dosage: 72 MG/M2, FREQ: 1 WEEK; INTERVAL: 3
     Route: 042
  4. DOCETAXEL. [Suspect]
     Active Substance: DOCETAXEL
     Dosage: 8.09 MG, 170 MG EVERY 21 DAYS, FREQ: 1 DAY; INTERVAL: 1
     Route: 042
     Dates: start: 20150817, end: 20150817
  5. DEXAMETHASONE. [Concomitant]
     Active Substance: DEXAMETHASONE
     Indication: ALLERGY PROPHYLAXIS
     Dosage: 20 MG, FREQ: 1 DAY; INTERVAL: 1
     Route: 042
     Dates: start: 20150817, end: 20150817
  6. DEXAMETHASONE. [Concomitant]
     Active Substance: DEXAMETHASONE
     Indication: PROPHYLAXIS OF NAUSEA AND VOMITING
     Dosage: 20 MG, FREQ: 1 DAY; INTERVAL: 1
     Route: 042
     Dates: start: 20151019, end: 20151019
  7. FOSAPREPITANT [Concomitant]
     Active Substance: FOSAPREPITANT
     Indication: ALLERGY PROPHYLAXIS
     Dosage: 1 AMPOULE
     Route: 042
     Dates: start: 20151019, end: 20151019
  8. ONDANSETRON [Concomitant]
     Active Substance: ONDANSETRON
     Indication: ALLERGY PROPHYLAXIS
     Dosage: 1 AMPOULE
     Route: 042
     Dates: start: 20151019, end: 20151019

REACTIONS (7)
  - Injection site discolouration [Recovering/Resolving]
  - Pruritus [Recovering/Resolving]
  - Chemical burn of skin [Recovering/Resolving]
  - Erythema [Recovered/Resolved]
  - Throat tightness [Recovered/Resolved]
  - Injection site erythema [Recovering/Resolving]
  - Skin lesion [Recovering/Resolving]

NARRATIVE: CASE EVENT DATE: 20150817
